FAERS Safety Report 21599542 (Version 2)
Quarter: 2022Q4

REPORT INFORMATION
  Report Type: Spontaneous
  Country: FR (occurrence: FR)
  Receive Date: 20221115
  Receipt Date: 20221121
  Transmission Date: 20230113
  Serious: Yes (Death, Hospitalization)
  Sender: FDA-Public Use
  Company Number: None

PATIENT
  Age: 54 Year
  Sex: Male

DRUGS (7)
  1. KEYTRUDA [Suspect]
     Active Substance: PEMBROLIZUMAB
     Indication: Metastatic squamous cell carcinoma
     Dosage: 400 MILLIGRAM
     Route: 042
     Dates: start: 20220309, end: 20220309
  2. KEYTRUDA [Suspect]
     Active Substance: PEMBROLIZUMAB
     Dosage: 400 MILLIGRAM
     Route: 042
     Dates: start: 20220519, end: 20220519
  3. KEYTRUDA [Suspect]
     Active Substance: PEMBROLIZUMAB
     Dosage: 400 MILLIGRAM
     Route: 042
     Dates: start: 20211027, end: 20211027
  4. KEYTRUDA [Suspect]
     Active Substance: PEMBROLIZUMAB
     Dosage: 400 MILLIGRAM
     Route: 042
     Dates: start: 20220126, end: 20220126
  5. ERBITUX [Suspect]
     Active Substance: CETUXIMAB
     Indication: Metastatic squamous cell carcinoma
     Dosage: 250 MILLIGRAM/SQ. METER
     Route: 042
     Dates: start: 20220509, end: 20220509
  6. ERBITUX [Suspect]
     Active Substance: CETUXIMAB
     Dosage: 250 MILLIGRAM/SQ. METER
     Route: 042
     Dates: start: 20220519, end: 20220519
  7. ERBITUX [Suspect]
     Active Substance: CETUXIMAB
     Dosage: 400 MILLIGRAM/SQ. METER
     Route: 042
     Dates: start: 20220503, end: 20220503

REACTIONS (1)
  - Colitis [Fatal]

NARRATIVE: CASE EVENT DATE: 20220524
